FAERS Safety Report 17542005 (Version 1)
Quarter: 2020Q1

REPORT INFORMATION
  Report Type: Report from Study
  Country: CA (occurrence: CA)
  Receive Date: 20200313
  Receipt Date: 20200313
  Transmission Date: 20200409
  Serious: Yes (Other)
  Sender: FDA-Public Use
  Company Number: CA-PFIZER INC-2020108992

PATIENT
  Sex: Female

DRUGS (1)
  1. SOMATROPIN. [Suspect]
     Active Substance: SOMATROPIN
     Indication: PRADER-WILLI SYNDROME
     Dosage: 2 MG, 1X/DAY
     Route: 058

REACTIONS (3)
  - Scratch [Not Recovered/Not Resolved]
  - Scoliosis [Not Recovered/Not Resolved]
  - Skin reaction [Not Recovered/Not Resolved]
